FAERS Safety Report 4750457-1 (Version None)
Quarter: 2005Q3

REPORT INFORMATION
  Report Type: 
  Country: None (occurrence: None)
  Receive Date: 20050823
  Receipt Date: 20050817
  Transmission Date: 20060218
  Serious: Yes (Other)
  Sender: FDA-Public Use
  Company Number: JPKYO-S-20050018

PATIENT
  Age: 70 Year
  Sex: Male

DRUGS (2)
  1. NAVELBINE [Suspect]
     Indication: LUNG SQUAMOUS CELL CARCINOMA STAGE UNSPECIFIED
     Dosage: 35MG PER DAY
     Route: 042
  2. ZOFRAN [Concomitant]
     Dates: start: 20050407, end: 20050407

REACTIONS (5)
  - BLOOD PRESSURE DECREASED [None]
  - BRADYCARDIA [None]
  - CHEST PAIN [None]
  - HYPERHIDROSIS [None]
  - SYNCOPE VASOVAGAL [None]
